FAERS Safety Report 19894891 (Version 1)
Quarter: 2021Q3

REPORT INFORMATION
  Report Type: Spontaneous
  Country: FR (occurrence: FR)
  Receive Date: 20210929
  Receipt Date: 20210929
  Transmission Date: 20211014
  Serious: Yes (Hospitalization)
  Sender: FDA-Public Use
  Company Number: FR-SUN PHARMACEUTICAL INDUSTRIES LTD-2021RR-311794

PATIENT
  Age: 74 Year
  Sex: Female

DRUGS (2)
  1. MORPHINE [Suspect]
     Active Substance: MORPHINE
     Indication: PRODUCT ADMINISTRATION ERROR
     Dosage: 40 MILLIGRAM, IN TOTAL
     Route: 042
     Dates: start: 20210904, end: 20210904
  2. VALIUM [Suspect]
     Active Substance: DIAZEPAM
     Indication: PRODUCT ADMINISTRATION ERROR
     Dosage: 120 MILLIGRAM, IN TOTAL
     Route: 042
     Dates: start: 20210904, end: 20210904

REACTIONS (5)
  - Product preparation error [Recovered/Resolved]
  - Accidental overdose [Recovered/Resolved]
  - Coma [Recovered/Resolved]
  - Bradypnoea [Recovered/Resolved]
  - Incorrect dose administered by device [Recovered/Resolved]

NARRATIVE: CASE EVENT DATE: 20210904
